FAERS Safety Report 11202511 (Version 1)
Quarter: 2015Q2

REPORT INFORMATION
  Report Type: Spontaneous
  Country: US (occurrence: US)
  Receive Date: 20150619
  Receipt Date: 20150619
  Transmission Date: 20150821
  Serious: No
  Sender: FDA-Public Use
  Company Number: US-PFIZER INC-2015201131

PATIENT
  Age: 66 Year
  Sex: Female
  Weight: 82 kg

DRUGS (2)
  1. GABAPENTIN. [Suspect]
     Active Substance: GABAPENTIN
     Indication: FIBROMYALGIA
     Dosage: 600 MG TABLETS, CUT IN HALF, ONE OR TWO HALVES A DAY EVERY OTHER DAY
  2. NEURONTIN [Suspect]
     Active Substance: GABAPENTIN
     Indication: FIBROMYALGIA
     Dosage: FOUR OR SIX OF THE 600 MG DOSES A DAY

REACTIONS (3)
  - Intentional product misuse [Unknown]
  - Drug ineffective for unapproved indication [Unknown]
  - Peripheral swelling [Unknown]
